FAERS Safety Report 11776474 (Version 2)
Quarter: 2016Q1

REPORT INFORMATION
  Report Type: Report from Study
  Country: CA (occurrence: CA)
  Receive Date: 20151125
  Receipt Date: 20160202
  Transmission Date: 20160525
  Serious: Yes (Other)
  Sender: FDA-Public Use
  Company Number: CA-BEH-2015056010

PATIENT
  Sex: Male
  Weight: 84 kg

DRUGS (1)
  1. HIZENTRA [Suspect]
     Active Substance: HUMAN IMMUNOGLOBULIN G
     Indication: SECONDARY IMMUNODEFICIENCY
     Dosage: STOP DATE: ??-???-2015. PUSH METHOD.
     Route: 058

REACTIONS (1)
  - Recurrent cancer [Unknown]
